FAERS Safety Report 24955893 (Version 1)
Quarter: 2025Q1

REPORT INFORMATION
  Report Type: Report from Study
  Country: US (occurrence: US)
  Receive Date: 20250211
  Receipt Date: 20250211
  Transmission Date: 20250409
  Serious: Yes (Death, Other)
  Sender: PURDUE
  Company Number: US-PURDUE-USA-2025-0315390

PATIENT
  Age: 39 Year
  Sex: Male

DRUGS (2)
  1. DEXTROAMPHETAMINE SACCHARATE, AMPHETAMINE ASPARTATE, DEXTROAMPHETAMINE [Suspect]
     Active Substance: AMPHETAMINE ASPARTATE\AMPHETAMINE SULFATE\DEXTROAMPHETAMINE SACCHARATE\DEXTROAMPHETAMINE SULFATE
     Indication: Product used for unknown indication
     Route: 048
  2. TENAMFETAMINE [Suspect]
     Active Substance: TENAMFETAMINE
     Indication: Product used for unknown indication
     Route: 048

REACTIONS (15)
  - Toxicity to various agents [Fatal]
  - Drug abuse [Fatal]
  - Hallucination [Unknown]
  - Disseminated intravascular coagulation [Unknown]
  - Intestinal perforation [Unknown]
  - Multiple organ dysfunction syndrome [Unknown]
  - Hepatotoxicity [Unknown]
  - Rhabdomyolysis [Unknown]
  - Seizure [Unknown]
  - Acute kidney injury [Unknown]
  - Acute hepatic failure [Unknown]
  - Acute respiratory failure [Unknown]
  - Hypotension [Recovered/Resolved]
  - Inappropriate affect [Unknown]
  - Drug screen positive [Unknown]

NARRATIVE: CASE EVENT DATE: 20230101
